FAERS Safety Report 4344865-0 (Version None)
Quarter: 2004Q2

REPORT INFORMATION
  Report Type: 
  Country: None (occurrence: None)
  Receive Date: 20040423
  Receipt Date: 20030925
  Transmission Date: 20050107
  Serious: No
  Sender: FDA-Public Use
  Company Number: US-GLAXOSMITHKLINE-A0427540A

PATIENT
  Age: 23 Year
  Sex: Female

DRUGS (3)
  1. ZOFRAN [Suspect]
     Indication: PROPHYLAXIS OF NAUSEA AND VOMITING
     Route: 042
     Dates: start: 20030916, end: 20030901
  2. ZOFRAN [Suspect]
     Dosage: 4MG TWICE PER DAY
     Route: 048
     Dates: start: 20030901, end: 20030924
  3. PRENATAL VITAMINS [Concomitant]
     Indication: PREGNANCY

REACTIONS (7)
  - DEPRESSION [None]
  - DIARRHOEA [None]
  - DRUG EXPOSURE DURING PREGNANCY [None]
  - HEADACHE [None]
  - INSOMNIA [None]
  - IRRITABILITY [None]
  - PANIC ATTACK [None]
